FAERS Safety Report 13429975 (Version 1)
Quarter: 2017Q2

REPORT INFORMATION
  Report Type: Spontaneous
  Country: US (occurrence: US)
  Receive Date: 20170411
  Receipt Date: 20170411
  Transmission Date: 20170830
  Serious: Yes (Disabling, Other)
  Sender: FDA-Public Use
  Company Number: None

PATIENT
  Age: 54 Year
  Sex: Female
  Weight: 51.75 kg

DRUGS (8)
  1. GABAPENTIN. [Suspect]
     Active Substance: GABAPENTIN
     Indication: NEUROPATHY PERIPHERAL
     Dosage: ?          QUANTITY:3 CAPSULE(S);?
     Route: 048
     Dates: start: 20161201, end: 20170301
  2. HYDROCHOLOTHIAZIDE 25 MG TABLET [Concomitant]
     Active Substance: HYDROCHLOROTHIAZIDE
  3. ASPIRIN. [Concomitant]
     Active Substance: ASPIRIN
  4. EXCEDRIN [Concomitant]
     Active Substance: ACETAMINOPHEN\ASPIRIN\CAFFEINE
  5. PANTOPRAZOLE SOD [Concomitant]
     Active Substance: PANTOPRAZOLE SODIUM
  6. TYLENOL [Concomitant]
     Active Substance: ACETAMINOPHEN
  7. LISINOPRIL. [Concomitant]
     Active Substance: LISINOPRIL
  8. GABAPENTIN. [Concomitant]
     Active Substance: GABAPENTIN

REACTIONS (3)
  - Pain in extremity [None]
  - Oropharyngeal pain [None]
  - Back pain [None]

NARRATIVE: CASE EVENT DATE: 20170310
